FAERS Safety Report 4382758-3 (Version None)
Quarter: 2004Q2

REPORT INFORMATION
  Report Type: 
  Country: None (occurrence: None)
  Receive Date: 20040617
  Receipt Date: 20040608
  Transmission Date: 20050107
  Serious: Yes (Other)
  Sender: FDA-Public Use
  Company Number: HQWYE017422MAR04

PATIENT
  Age: 64 Year
  Sex: Male
  Weight: 97.3 kg

DRUGS (2)
  1. MYLOTARG [Suspect]
     Indication: ACUTE MYELOID LEUKAEMIA
     Dosage: 13.4 MG 1X PER 1 DAY; INTRAVENOUS (SEE IMAGE)
     Route: 042
     Dates: start: 20040217, end: 20040217
  2. MYLOTARG [Suspect]
     Indication: ACUTE MYELOID LEUKAEMIA
     Dosage: 13.4 MG 1X PER 1 DAY; INTRAVENOUS (SEE IMAGE)
     Route: 042
     Dates: start: 20040224, end: 20040224

REACTIONS (1)
  - DISSEMINATED INTRAVASCULAR COAGULATION [None]
